FAERS Safety Report 12403568 (Version 4)
Quarter: 2016Q2

REPORT INFORMATION
  Report Type: Report from Study
  Country: BG (occurrence: BG)
  Receive Date: 20160525
  Receipt Date: 20160617
  Transmission Date: 20160815
  Serious: Yes (Life-Threatening, Hospitalization)
  Sender: FDA-Public Use
  Company Number: PHHY2016BG070552

PATIENT
  Age: 9 Year
  Sex: Male

DRUGS (1)
  1. EXJADE [Suspect]
     Active Substance: DEFERASIROX
     Indication: THALASSAEMIA BETA
     Dosage: 30 MG/KG, QD
     Route: 048
     Dates: start: 2012, end: 20160511

REACTIONS (6)
  - Lethargy [Unknown]
  - Confusional state [Unknown]
  - Coma [Recovered/Resolved]
  - Hypercalciuria [Recovered/Resolved]
  - Proteinuria [Recovered/Resolved]
  - Renal tubular acidosis [Recovered/Resolved]

NARRATIVE: CASE EVENT DATE: 20160512
